FAERS Safety Report 25312789 (Version 1)
Quarter: 2025Q2

REPORT INFORMATION
  Report Type: Spontaneous
  Country: US (occurrence: None)
  Receive Date: 20250513
  Receipt Date: 20250513
  Transmission Date: 20250716
  Serious: Yes (Hospitalization)
  Sender: FDA-CTU
  Company Number: None

PATIENT
  Age: 68 Year
  Sex: Male

DRUGS (7)
  1. COLLAGENASE SANTYL [Suspect]
     Active Substance: COLLAGENASE CLOSTRIDIUM HISTOLYTICUM
     Indication: Skin wound
     Dosage: FREQUENCY : DAILY;?
     Route: 061
     Dates: start: 20250220
  2. CLONIDINE [Concomitant]
     Active Substance: CLONIDINE
  3. DOXYCYCLINE HYCLATE [Concomitant]
     Active Substance: DOXYCYCLINE HYCLATE
  4. GABAPENTIN [Concomitant]
     Active Substance: GABAPENTIN
  5. MELATONIN 10MG CAPSULES [Concomitant]
  6. MELOXICAM [Concomitant]
     Active Substance: MELOXICAM
  7. RISPERIDONE [Concomitant]
     Active Substance: RISPERIDONE

REACTIONS (1)
  - Wound sepsis [None]

NARRATIVE: CASE EVENT DATE: 20250313
